FAERS Safety Report 17429487 (Version 1)
Quarter: 2020Q1

REPORT INFORMATION
  Report Type: Spontaneous
  Country: US (occurrence: US)
  Receive Date: 20200217
  Receipt Date: 20200217
  Transmission Date: 20200409
  Serious: Yes (Other)
  Sender: FDA-Public Use
  Company Number: None

PATIENT
  Age: 15 Year
  Sex: Male
  Weight: 68.04 kg

DRUGS (1)
  1. CEPHALEXIN 500 MG CAPSULE [Suspect]
     Active Substance: CEPHALEXIN

REACTIONS (4)
  - Dyspnoea [None]
  - Pyrexia [None]
  - Oropharyngeal pain [None]
  - Pharyngeal swelling [None]

NARRATIVE: CASE EVENT DATE: 20200216
